FAERS Safety Report 21434341 (Version 1)
Quarter: 2022Q4

REPORT INFORMATION
  Report Type: Spontaneous
  Country: SK (occurrence: SK)
  Receive Date: 20221010
  Receipt Date: 20221010
  Transmission Date: 20230113
  Serious: Yes (Disabling)
  Sender: FDA-Public Use
  Company Number: SK-SA-SAC20220922001478

PATIENT
  Sex: Female

DRUGS (4)
  1. PRALUENT [Suspect]
     Active Substance: ALIROCUMAB
     Indication: Dyslipidaemia
     Dosage: 75 MG, QOW
     Route: 058
     Dates: start: 20220817, end: 202209
  2. URAPIDIL [Concomitant]
     Active Substance: URAPIDIL
     Dosage: UNK
  3. CANDESARTAN [Concomitant]
     Active Substance: CANDESARTAN
     Dosage: UNK
  4. EZETIMIBE [Concomitant]
     Active Substance: EZETIMIBE
     Dosage: UNK

REACTIONS (8)
  - Loss of personal independence in daily activities [Unknown]
  - Pain in extremity [Unknown]
  - Muscle spasms [Unknown]
  - Muscle tightness [Unknown]
  - Incorrect route of product administration [Unknown]
  - Paraesthesia [Recovering/Resolving]
  - Asthenia [Recovering/Resolving]
  - Electric shock sensation [Recovering/Resolving]

NARRATIVE: CASE EVENT DATE: 20220801
